FAERS Safety Report 5164188-X (Version None)
Quarter: 2006Q4

REPORT INFORMATION
  Report Type: 
  Country: None (occurrence: None)
  Receive Date: 20060918
  Receipt Date: 20050829
  Transmission Date: 20070319
  Serious: Yes (Hospitalization)
  Sender: FDA-Public Use
  Company Number: US-JNJFOC-20050900055

PATIENT
  Age: 69 Year
  Sex: Female

DRUGS (2)
  1. TOPAMAX [Suspect]
     Indication: MIGRAINE
     Dosage: 25 MG, 2 IN 1 DAY, ORAL
     Route: 048
     Dates: start: 20050801, end: 20050809
  2. MULTI-VITAMINS [Concomitant]

REACTIONS (3)
  - ANGLE CLOSURE GLAUCOMA [None]
  - COMA [None]
  - HEADACHE [None]
